FAERS Safety Report 6793996-4 (Version None)
Quarter: 2010Q2

REPORT INFORMATION
  Report Type: 
  Country: None (occurrence: None)
  Receive Date: 20100624
  Receipt Date: 20070124
  Transmission Date: 20101027
  Serious: No
  Sender: FDA-Public Use
  Company Number: US-PFIZER INC-ENC200700010

PATIENT
  Sex: Female

DRUGS (1)
  1. ARGATROBAN [Suspect]

REACTIONS (1)
  - COAGULATION TIME PROLONGED [None]
